FAERS Safety Report 7955331-5 (Version None)
Quarter: 2011Q4

REPORT INFORMATION
  Report Type: 
  Country: None (occurrence: None)
  Receive Date: 20111202
  Receipt Date: 20111121
  Transmission Date: 20120403
  Serious: Yes (Hospitalization)
  Sender: FDA-Public Use
  Company Number: US-ELI_LILLY_AND_COMPANY-US201107006588

PATIENT
  Sex: Female

DRUGS (16)
  1. ADVAIR DISKUS 100/50 [Concomitant]
  2. BACID [Concomitant]
  3. XANAX [Concomitant]
  4. VERAPAMIL [Concomitant]
  5. DOXYCYCLINE [Concomitant]
  6. FORTEO [Suspect]
     Dosage: 20 UG, QD
     Route: 065
  7. METFORMIN HCL [Concomitant]
  8. TIZANIDINE HCL [Concomitant]
  9. FORTEO [Suspect]
     Indication: OSTEOPOROSIS
     Dosage: 20 UG, QD
     Route: 065
     Dates: start: 20110708
  10. CYMBALTA [Concomitant]
  11. PERCOCET [Concomitant]
  12. SPIRIVA [Concomitant]
  13. FOLIC ACID [Concomitant]
  14. OMEPRAZOLE [Concomitant]
  15. PREDNISONE TAB [Concomitant]
  16. LEVOSALBUTAMOL [Concomitant]

REACTIONS (5)
  - DYSPNOEA [None]
  - PAIN IN EXTREMITY [None]
  - MOVEMENT DISORDER [None]
  - EMPHYSEMA [None]
  - PARAESTHESIA [None]
